FAERS Safety Report 5441552-2 (Version None)
Quarter: 2007Q3

REPORT INFORMATION
  Report Type: 
  Country: None (occurrence: None)
  Receive Date: 20070904
  Receipt Date: 20070823
  Transmission Date: 20080115
  Serious: Yes (Hospitalization)
  Sender: FDA-Public Use
  Company Number: SE-BRISTOL-MYERS SQUIBB COMPANY-13894571

PATIENT
  Age: 63 Year
  Sex: Male

DRUGS (10)
  1. UROMITEXAN [Suspect]
     Indication: VASCULITIS
     Route: 048
     Dates: start: 20070719, end: 20070719
  2. ENDOXAN [Suspect]
     Indication: VASCULITIS
     Dosage: FIRST INFUSION 6-JUL-2007 TO 6-JUL-2007. ROUTE: IV. DOSE: UNKNOWN.
     Route: 042
     Dates: start: 20070719, end: 20070719
  3. LIPITOR [Concomitant]
     Dosage: TABLET
  4. TADALAFIL [Concomitant]
     Dosage: TABLET
  5. ATACAND [Concomitant]
     Dosage: TABLET
  6. SODIUM BICARBONATE [Concomitant]
     Dosage: TABLET
  7. EMGESAN [Concomitant]
     Dosage: TABLET
  8. PREDNISOLONE [Concomitant]
     Dosage: TABLET
  9. CALCICHEW D3 [Concomitant]
  10. EPOETIN BETA [Concomitant]
     Dosage: SOLUTION FOR INJECTION

REACTIONS (4)
  - CHILLS [None]
  - PYREXIA [None]
  - URTICARIA [None]
  - VOMITING [None]
